FAERS Safety Report 21128855 (Version 16)
Quarter: 2023Q1

REPORT INFORMATION
  Report Type: Report from Study
  Country: GB (occurrence: GB)
  Receive Date: 20220725
  Receipt Date: 20230303
  Transmission Date: 20230418
  Serious: Yes (Hospitalization, Other)
  Sender: FDA-Public Use
  Company Number: None

PATIENT
  Age: 61 Year
  Sex: Female
  Weight: 61.6 kg

DRUGS (80)
  1. DOCETAXEL [Suspect]
     Active Substance: DOCETAXEL
     Indication: Breast cancer
     Dosage: 120 MILLIGRAM (STOPPED IN 2012)
     Route: 065
     Dates: start: 20120817
  2. DOCETAXEL [Suspect]
     Active Substance: DOCETAXEL
     Dosage: UNK
     Route: 065
     Dates: start: 20120817
  3. DOCETAXEL [Suspect]
     Active Substance: DOCETAXEL
     Dosage: 80 MILLIGRAM, (INITIATED ON 12-OCT-2012)
     Route: 065
  4. DOCETAXEL [Suspect]
     Active Substance: DOCETAXEL
     Dosage: (INITIATED ON 12-OCT-2012)
     Route: 065
  5. DOCETAXEL [Suspect]
     Active Substance: DOCETAXEL
     Dosage: 120 MILLIGRAM, INITIATED: 10-DEC-2012
     Route: 065
  6. DOCETAXEL [Suspect]
     Active Substance: DOCETAXEL
     Dosage: UNK, INITIATED: 10-DEC-2012
     Route: 065
  7. DOCETAXEL [Suspect]
     Active Substance: DOCETAXEL
     Dosage: 120 MILLIGRAM (120 MG, (10-DEC-2012)
     Route: 065
  8. DOCETAXEL [Suspect]
     Active Substance: DOCETAXEL
     Dosage: 80 MILLIGRAM (INITIATED ON 12-OCT-2012) 80 MG, UNK )
     Route: 065
  9. TRASTUZUMAB [Suspect]
     Active Substance: TRASTUZUMAB
     Indication: Breast cancer
     Dosage: 230 (UNIT UNSPECIFIED)
     Route: 042
     Dates: start: 20120817
  10. TRASTUZUMAB [Suspect]
     Active Substance: TRASTUZUMAB
     Dosage: 420 MILLIGRAM
     Route: 042
     Dates: start: 20120817
  11. TRASTUZUMAB [Suspect]
     Active Substance: TRASTUZUMAB
     Dosage: 546 MG, INTRAVENOUS INFUSION, DRIP
     Route: 042
     Dates: start: 20120817
  12. TRASTUZUMAB [Suspect]
     Active Substance: TRASTUZUMAB
     Dosage: 420 MILLIGRAM
     Route: 042
     Dates: start: 20120817
  13. TRASTUZUMAB [Suspect]
     Active Substance: TRASTUZUMAB
     Dosage: 546 MILLIGRAM, IV DRIP
     Route: 065
     Dates: start: 20120817
  14. TRASTUZUMAB [Suspect]
     Active Substance: TRASTUZUMAB
     Dosage: 420 MG(INITIATED 12-OCT-2012)
     Route: 042
  15. TRASTUZUMAB [Suspect]
     Active Substance: TRASTUZUMAB
     Dosage: 420 MILLIGRAM, (INITIATED 12-OCT-2012)
     Route: 042
  16. TRASTUZUMAB [Suspect]
     Active Substance: TRASTUZUMAB
     Dosage: (INITIATED 12-OCT-2012)
     Route: 042
  17. METFORMIN [Suspect]
     Active Substance: METFORMIN HYDROCHLORIDE
     Indication: Product used for unknown indication
     Dosage: 2 GRAM
     Route: 048
  18. METFORMIN [Suspect]
     Active Substance: METFORMIN HYDROCHLORIDE
     Dosage: 2 GRAM
     Route: 048
  19. CARBOPLATIN [Suspect]
     Active Substance: CARBOPLATIN
     Indication: Breast cancer
     Dosage: 750 MILLIGRAM
     Route: 065
     Dates: start: 20120817
  20. CARBOPLATIN [Suspect]
     Active Substance: CARBOPLATIN
     Dosage: UNK
     Route: 065
     Dates: start: 20120817
  21. CARBOPLATIN [Suspect]
     Active Substance: CARBOPLATIN
     Dosage: 500 MILLIGRAM, (INITIATED 12-OCT-2012)
     Route: 065
  22. CARBOPLATIN [Suspect]
     Active Substance: CARBOPLATIN
     Dosage: UNK, 12-OCT-2012
     Route: 065
  23. CARBOPLATIN [Suspect]
     Active Substance: CARBOPLATIN
     Dosage: 750 MILLIGRAM (750 MILLIGRAM)
     Route: 065
     Dates: start: 20120817
  24. CARBOPLATIN [Suspect]
     Active Substance: CARBOPLATIN
     Dosage: 500 MILLIGRAM (500 MG) 12-OCT-2012
     Route: 065
  25. CARBOPLATIN [Suspect]
     Active Substance: CARBOPLATIN
     Dosage: UNK
     Route: 065
  26. BEVACIZUMAB [Suspect]
     Active Substance: BEVACIZUMAB
     Indication: Non-small cell lung cancer metastatic
     Dosage: UNK (PDF-11201000)
     Route: 065
  27. BEVACIZUMAB [Suspect]
     Active Substance: BEVACIZUMAB
     Dosage: UNK
     Route: 065
  28. BEVACIZUMAB [Suspect]
     Active Substance: BEVACIZUMAB
     Dosage: 1 DOSAGE FORM (1 DF) 04-FEB-2020
     Route: 065
  29. BEVACIZUMAB [Suspect]
     Active Substance: BEVACIZUMAB
     Dosage: UNK (PDF-11201000)
     Route: 042
  30. ATEZOLIZUMAB [Suspect]
     Active Substance: ATEZOLIZUMAB
     Indication: Neoplasm malignant
     Dosage: 1200 MILLIGRAM (1200 MILLIGRAM, TIW) 04-FEB-2020
     Route: 042
  31. ATEZOLIZUMAB [Suspect]
     Active Substance: ATEZOLIZUMAB
     Dosage: 1200 MILLIGRAM, 3XW (1200 MILLIGRAM Q3WEEK) 25-MAR-2020
     Route: 042
  32. ATEZOLIZUMAB [Suspect]
     Active Substance: ATEZOLIZUMAB
     Dosage: 1200 MILLIGRAM, 3XW (1200 MILLIGRAM Q3WEEK) 24-JUN-2020
     Route: 042
  33. ATEZOLIZUMAB [Suspect]
     Active Substance: ATEZOLIZUMAB
     Dosage: 1200 MILLIGRAM, 3XW (1200 MILLIGRAM Q3WEEK) 06-MAR-2020
     Route: 042
  34. ATEZOLIZUMAB [Suspect]
     Active Substance: ATEZOLIZUMAB
     Dosage: 1200 MILLIGRAM, 3XW (1200 MILLIGRAM Q3WEEK) 16-SEP-2020
     Route: 042
  35. ATEZOLIZUMAB [Suspect]
     Active Substance: ATEZOLIZUMAB
     Dosage: 1200 MILLIGRAM, 3XW (1200 MILLIGRAM Q3WEEK) 13-MAY-2020
     Route: 042
     Dates: end: 20200715
  36. ATEZOLIZUMAB [Suspect]
     Active Substance: ATEZOLIZUMAB
     Dosage: 1200 MILLIGRAM, 3XW (1200 MILLIGRAM Q3WEEK) 03-JUN-2020
     Route: 042
  37. ATEZOLIZUMAB [Suspect]
     Active Substance: ATEZOLIZUMAB
     Dosage: 1200 MILLIGRAM, 3XW (1200 MILLIGRAM Q3WEEK) 12-MAR-2020
     Route: 042
  38. ATEZOLIZUMAB [Suspect]
     Active Substance: ATEZOLIZUMAB
     Dosage: 1200 MILLIGRAM, 3XW (1200 MILLIGRAM Q3WEEK) 15-JUL-2020
     Route: 042
  39. ATEZOLIZUMAB [Suspect]
     Active Substance: ATEZOLIZUMAB
     Dosage: 1200 MILLIGRAM, 3XW (1200 MILLIGRAM Q3WEEK) 05-AUG-2020
     Route: 042
  40. ATEZOLIZUMAB [Suspect]
     Active Substance: ATEZOLIZUMAB
     Dosage: 1200 MILLIGRAM, 3XW (1200 MILLIGRAM Q3WEEK) 12-AUG-2020
     Route: 042
  41. ATEZOLIZUMAB [Suspect]
     Active Substance: ATEZOLIZUMAB
     Dosage: 1200 MILLIGRAM, 3XW (1200 MILLIGRAM Q3WEEK) 26-AUG-2020
     Route: 042
  42. ATEZOLIZUMAB [Suspect]
     Active Substance: ATEZOLIZUMAB
     Dosage: 1200 MILLIGRAM, 3XW (1200 MILLIGRAM Q3WEEK) 4-MAR-2020
     Route: 042
  43. ATEZOLIZUMAB [Suspect]
     Active Substance: ATEZOLIZUMAB
     Dosage: 1200 MILLIGRAM, 3XW (1200 MILLIGRAM Q3WEEK) 26-JUN-2020
     Route: 042
  44. ATEZOLIZUMAB [Suspect]
     Active Substance: ATEZOLIZUMAB
     Dosage: 1200 MILLIGRAM, 3XW (1200 MILLIGRAM Q3WEEK) 12-FEB-2020
     Route: 042
     Dates: end: 20200415
  45. ATEZOLIZUMAB [Suspect]
     Active Substance: ATEZOLIZUMAB
     Dosage: 1200 MILLIGRAM, 3XW (1200 MILLIGRAM Q3WEEK) 15-APR-2020
     Route: 042
  46. ATEZOLIZUMAB [Suspect]
     Active Substance: ATEZOLIZUMAB
     Dosage: 1200 MILLIGRAM, 3XW (1200 MILLIGRAM Q3WEEK) 12-MAR-2020
     Route: 042
  47. HERCEPTIN [Suspect]
     Active Substance: TRASTUZUMAB
     Indication: Product used for unknown indication
     Dosage: 420 MILLIGRAM (INITIATED 12-OCT-2012)
     Route: 065
  48. HERCEPTIN [Suspect]
     Active Substance: TRASTUZUMAB
     Indication: Breast cancer
     Dosage: 546 MILLIGRAM
     Route: 042
     Dates: start: 20120817
  49. HERCEPTIN [Suspect]
     Active Substance: TRASTUZUMAB
     Dosage: 420 MG, INITIATED: 12-OCT-2012 00:00
     Route: 042
  50. PERTUZUMAB [Suspect]
     Active Substance: PERTUZUMAB
     Indication: Breast cancer
     Dosage: 1 MG, Q3W (SAE END: 12/OCT/2012)
     Route: 042
     Dates: start: 20120817
  51. PERTUZUMAB [Suspect]
     Active Substance: PERTUZUMAB
     Dosage: 1G,Q3W(LAST DOSE PRIOR TO SAE:12/OCT/2012)
     Route: 042
     Dates: start: 20120817
  52. PERTUZUMAB [Suspect]
     Active Substance: PERTUZUMAB
     Dosage: 1 MG, Q3W (LAST DOSE PRIOR TO SAE: 12/OCT/2012)
     Route: 042
     Dates: start: 20120817
  53. PERTUZUMAB [Suspect]
     Active Substance: PERTUZUMAB
     Dosage: 1 MG, Q3W (LAST DOSE PRIOR TO SAE: 12/OCT/2012)
     Route: 042
     Dates: start: 20120817, end: 20121012
  54. PERTUZUMAB [Suspect]
     Active Substance: PERTUZUMAB
     Dosage: 1 GRAM
     Route: 042
     Dates: start: 20120817, end: 20121012
  55. PERTUZUMAB [Suspect]
     Active Substance: PERTUZUMAB
     Dosage: INITIATED: 12-OCT-2012 00:00
     Route: 042
  56. PERTUZUMAB [Suspect]
     Active Substance: PERTUZUMAB
     Dosage: INITIATED: 12-OCT-2012 00:00
     Route: 042
  57. TRASTUZUMAB [Suspect]
     Active Substance: TRASTUZUMAB
     Indication: Breast cancer
     Dosage: 420 MILLIGRAM
     Route: 058
     Dates: start: 20120817
  58. TRASTUZUMAB [Suspect]
     Active Substance: TRASTUZUMAB
     Dosage: 420 MILLIGRAM
     Route: 058
     Dates: start: 20120817
  59. TRASTUZUMAB [Suspect]
     Active Substance: TRASTUZUMAB
     Dosage: 546 MILLIGRAM
     Route: 058
     Dates: start: 20120817
  60. TRASTUZUMAB [Suspect]
     Active Substance: TRASTUZUMAB
     Dosage: UNK, INITIATED: 12-OCT-2012 00:00
     Route: 058
  61. TRASTUZUMAB [Suspect]
     Active Substance: TRASTUZUMAB
     Dosage: 420 MILLIGRAM, INITIATED: 12-OCT-2012 00:00
     Route: 058
     Dates: end: 20121012
  62. ONDANSETRON [Concomitant]
     Active Substance: ONDANSETRON
     Indication: Product used for unknown indication
     Dosage: UNK
     Route: 048
     Dates: start: 20120817, end: 20120821
  63. ONDANSETRON [Concomitant]
     Active Substance: ONDANSETRON
     Dosage: UNK
     Route: 065
     Dates: start: 20120817
  64. ONDANSETRON [Concomitant]
     Active Substance: ONDANSETRON
     Dosage: UNK (BOLUS)
     Route: 048
     Dates: start: 20120817, end: 20120821
  65. ONDANSETRON [Concomitant]
     Active Substance: ONDANSETRON
     Dosage: UNK, INITIATION: 14-SEP-2012
     Route: 048
     Dates: end: 20120918
  66. ONDANSETRON [Concomitant]
     Active Substance: ONDANSETRON
     Dosage: 6 MILLIGRAM (4-6 MG), INITIATION: 12-OCT-2012
     Route: 048
     Dates: end: 20121018
  67. RANITIDINE [Concomitant]
     Active Substance: RANITIDINE
     Indication: Product used for unknown indication
     Dosage: BOLUS
     Route: 042
     Dates: start: 20120817
  68. RANITIDINE [Concomitant]
     Active Substance: RANITIDINE
     Dosage: UNK, BOLUS
     Route: 065
     Dates: start: 20120817
  69. FILGRASTIM [Concomitant]
     Active Substance: FILGRASTIM
     Indication: Product used for unknown indication
     Dosage: INITIATION: 18-AUG-2012, STOP DATE: 23-AUG-2012
     Route: 065
     Dates: end: 20120823
  70. FILGRASTIM [Concomitant]
     Active Substance: FILGRASTIM
     Dosage: INITIATION: 14-SEP-2012 00:00
     Route: 065
     Dates: end: 20120920
  71. FILGRASTIM [Concomitant]
     Active Substance: FILGRASTIM
     Dosage: UNK, INITIATION: 12-OCT-2012
     Route: 065
     Dates: end: 20121019
  72. DEXAMETHASONE [Concomitant]
     Active Substance: DEXAMETHASONE
     Indication: Product used for unknown indication
     Dosage: UNK
     Route: 065
     Dates: start: 20120816, end: 20120818
  73. METOCLOPRAMIDE [Concomitant]
     Active Substance: METOCLOPRAMIDE
     Indication: Product used for unknown indication
     Dosage: 80 MG(40-80 MG), INITIATION:14-SEP-2012
     Route: 048
     Dates: end: 20120920
  74. METOCLOPRAMIDE [Concomitant]
     Active Substance: METOCLOPRAMIDE
     Dosage: 80 MG(40-80 MG), INITIATION: 14-SEP-2012
     Route: 048
     Dates: end: 20120920
  75. GLICLAZIDE [Concomitant]
     Active Substance: GLICLAZIDE
     Indication: Product used for unknown indication
     Dosage: UNK
     Route: 065
  76. CHLORPHENIRAMINE MALEATE [Concomitant]
     Active Substance: CHLORPHENIRAMINE MALEATE
     Indication: Product used for unknown indication
     Dosage: BOLUS
     Route: 042
     Dates: start: 20120817
  77. SIMVASTATIN [Concomitant]
     Active Substance: SIMVASTATIN
     Indication: Product used for unknown indication
     Dosage: UNK
     Route: 065
  78. CALCIUM\CHOLECALCIFEROL [Concomitant]
     Active Substance: CALCIUM\CHOLECALCIFEROL
     Indication: Product used for unknown indication
     Dosage: UNK
     Route: 065
     Dates: start: 20120817
  79. CALCIUM\CHOLECALCIFEROL [Concomitant]
     Active Substance: CALCIUM\CHOLECALCIFEROL
     Dosage: UNK
     Route: 065
  80. ONDANSETRON [Concomitant]
     Active Substance: ONDANSETRON
     Indication: Product used for unknown indication
     Dosage: UNK
     Route: 042
     Dates: start: 20120817

REACTIONS (23)
  - Nausea [Not Recovered/Not Resolved]
  - Diarrhoea [Unknown]
  - Vomiting [Recovering/Resolving]
  - Off label use [Unknown]
  - Autoimmune haemolytic anaemia [Recovering/Resolving]
  - Hepatic failure [Not Recovered/Not Resolved]
  - Neuropathy peripheral [Unknown]
  - Abdominal pain upper [Not Recovered/Not Resolved]
  - Blood magnesium decreased [Recovering/Resolving]
  - Ear pain [Not Recovered/Not Resolved]
  - Disease progression [Unknown]
  - Haemoglobin decreased [Not Recovered/Not Resolved]
  - Platelet count decreased [Unknown]
  - White blood cell count decreased [Recovered/Resolved]
  - Mucosal inflammation [Not Recovered/Not Resolved]
  - Anaemia [Recovered/Resolved]
  - Decreased appetite [Not Recovered/Not Resolved]
  - Weight decreased [Recovered/Resolved]
  - Fatigue [Not Recovered/Not Resolved]
  - Pain in extremity [Unknown]
  - Bone pain [Not Recovered/Not Resolved]
  - Intentional product use issue [Unknown]
  - Intentional product misuse [Unknown]

NARRATIVE: CASE EVENT DATE: 20120817
